FAERS Safety Report 9569476 (Version 3)
Quarter: 2014Q1

REPORT INFORMATION
  Report Type: Spontaneous
  Country: US (occurrence: US)
  Receive Date: 20130930
  Receipt Date: 20140225
  Transmission Date: 20141002
  Serious: No
  Sender: FDA-Public Use
  Company Number: US-AMGEN-USASP2013065856

PATIENT
  Age: 50 Year
  Sex: Female
  Weight: 88.44 kg

DRUGS (15)
  1. ENBREL [Suspect]
     Indication: PRODUCT USED FOR UNKNOWN INDICATION
     Dosage: 50 MG, QWK
     Route: 058
  2. ADVIL                              /00109201/ [Concomitant]
     Dosage: 200 MG, UNK
     Route: 048
  3. BENEFIBER                          /00677201/ [Concomitant]
     Dosage: UNK
     Route: 048
  4. CELEBREX [Concomitant]
     Dosage: 100 MG, UNK
     Route: 048
  5. FLOMAX                             /00889901/ [Concomitant]
     Dosage: 0.4 MG, UNK
     Route: 048
  6. EXCEDRIN                           /00110301/ [Concomitant]
     Dosage: UNK
     Route: 048
  7. ALLEGRA [Concomitant]
     Dosage: 60 MG, UNK
     Route: 048
  8. IMITREX                            /01044801/ [Concomitant]
     Dosage: 25 MG, UNK
     Route: 048
  9. REGLAN                             /00041901/ [Concomitant]
     Dosage: 5 MG, UNK
     Route: 048
  10. MAGNESIUM [Concomitant]
     Dosage: 250 MG, UNK
     Route: 048
  11. PROCHLORPERAZ [Concomitant]
     Dosage: 5 MG, UNK
  12. PLAQUENIL                          /00072602/ [Concomitant]
     Dosage: 200 MG, UNK
     Route: 048
  13. SINGULAIR [Concomitant]
     Dosage: 10 MG, UNK
     Route: 048
  14. VITAMIN D                          /00107901/ [Concomitant]
     Dosage: 400 UNIT, UNK
     Route: 048
  15. PRILOSEC                           /00661201/ [Concomitant]
     Dosage: 10 MG, UNK
     Route: 048

REACTIONS (1)
  - Injection site bruising [Unknown]
